FAERS Safety Report 13334178 (Version 3)
Quarter: 2018Q1

REPORT INFORMATION
  Report Type: Spontaneous
  Country: JP (occurrence: JP)
  Receive Date: 20170314
  Receipt Date: 20180315
  Transmission Date: 20180508
  Serious: Yes (Hospitalization)
  Sender: FDA-Public Use
  Company Number: JP-JNJFOC-20170312006

PATIENT
  Age: 40 Year
  Sex: Female

DRUGS (9)
  1. VOGLIBOSE [Concomitant]
     Active Substance: VOGLIBOSE
     Route: 048
  2. APIDRA [Concomitant]
     Active Substance: INSULIN GLULISINE
     Indication: TYPE 2 DIABETES MELLITUS
     Dosage: DIVIDED IN 3 DOSES PER DAY
     Route: 051
     Dates: start: 20130522
  3. LANTUS [Concomitant]
     Active Substance: INSULIN GLARGINE
     Indication: TYPE 2 DIABETES MELLITUS
     Dosage: BEFORE ADMISSION
     Route: 051
     Dates: start: 20160920
  4. APIDRA [Concomitant]
     Active Substance: INSULIN GLULISINE
     Indication: TYPE 2 DIABETES MELLITUS
     Route: 051
  5. CANAGLU [Suspect]
     Active Substance: CANAGLIFLOZIN
     Indication: TYPE 2 DIABETES MELLITUS
     Route: 048
     Dates: start: 20160728, end: 20170222
  6. APIDRA [Concomitant]
     Active Substance: INSULIN GLULISINE
     Indication: TYPE 2 DIABETES MELLITUS
     Dosage: BEFORE ADMISSION
     Route: 051
  7. CANAGLU [Suspect]
     Active Substance: CANAGLIFLOZIN
     Indication: TYPE 2 DIABETES MELLITUS
     Route: 048
     Dates: start: 20170222, end: 20170222
  8. LANTUS [Concomitant]
     Active Substance: INSULIN GLARGINE
     Indication: TYPE 2 DIABETES MELLITUS
     Dosage: BEFORE ADMISSION
     Route: 051
  9. INSULIN [Concomitant]
     Active Substance: INSULIN NOS
     Route: 065

REACTIONS (4)
  - Hypoglycaemia [Recovering/Resolving]
  - Urine ketone body present [Unknown]
  - Suicide attempt [Unknown]
  - Intentional overdose [Recovered/Resolved]

NARRATIVE: CASE EVENT DATE: 201702
